FAERS Safety Report 12350215 (Version 6)
Quarter: 2020Q1

REPORT INFORMATION
  Report Type: Report from Study
  Country: GB (occurrence: US)
  Receive Date: 20160510
  Receipt Date: 20200224
  Transmission Date: 20200409
  Serious: Yes (Hospitalization, Other)
  Sender: FDA-Public Use
  Company Number: US-ASTELLAS-2016US012468

PATIENT
  Age: 62 Year
  Sex: Female

DRUGS (2)
  1. BEVACIZUMAB. [Suspect]
     Active Substance: BEVACIZUMAB
     Indication: NON-SMALL CELL LUNG CANCER
     Dosage: 15 MG/KG, ONCE IN 21 DAYS
     Route: 042
     Dates: start: 20150415, end: 20170207
  2. ERLOTINIB [Suspect]
     Active Substance: ERLOTINIB
     Indication: NON-SMALL CELL LUNG CANCER
     Route: 048
     Dates: start: 20150415, end: 20170207

REACTIONS (8)
  - Abdominal pain [Unknown]
  - Hypertension [Unknown]
  - Angina pectoris [Unknown]
  - Non-cardiac chest pain [Unknown]
  - Kidney infection [Unknown]
  - Pyelonephritis [Unknown]
  - Chest pain [Recovered/Resolved]
  - Abdominal pain [Unknown]

NARRATIVE: CASE EVENT DATE: 20150819
